FAERS Safety Report 16311134 (Version 1)
Quarter: 2019Q2

REPORT INFORMATION
  Report Type: Report from Study
  Country: FR (occurrence: FR)
  Receive Date: 20190514
  Receipt Date: 20190514
  Transmission Date: 20190711
  Serious: Yes (Other)
  Sender: FDA-Public Use
  Company Number: FR-MYLANLABS-2019M1045923

PATIENT

DRUGS (1)
  1. NALBUPHINE [Suspect]
     Active Substance: NALBUPHINE
     Indication: PROCEDURAL PAIN
     Dosage: SINGLE DOSE ADMINSITERED
     Route: 065

REACTIONS (2)
  - Bradycardia [Unknown]
  - Off label use [Unknown]
